FAERS Safety Report 24293914 (Version 1)
Quarter: 2024Q3

REPORT INFORMATION
  Report Type: Spontaneous
  Country: US (occurrence: None)
  Receive Date: 20240906
  Receipt Date: 20240906
  Transmission Date: 20241017
  Serious: No
  Sender: DOMPE FARMACEUTICI
  Company Number: US-FARMAPROD-202403-0925

PATIENT
  Age: 70 Year
  Sex: Female

DRUGS (13)
  1. OXERVATE [Suspect]
     Active Substance: CENEGERMIN-BKBJ
     Indication: Neurotrophic keratopathy
     Route: 047
     Dates: start: 20240222
  2. OXERVATE [Suspect]
     Active Substance: CENEGERMIN-BKBJ
  3. OMEGA-3 ACIDS [Concomitant]
     Active Substance: OMEGA-3 FATTY ACIDS
  4. GEMFIBROZIL [Concomitant]
     Active Substance: GEMFIBROZIL
  5. ALEVE [Concomitant]
     Active Substance: NAPROXEN SODIUM
  6. THIAMINE HYDROCHLORIDE [Concomitant]
     Active Substance: THIAMINE HYDROCHLORIDE
  7. VITAMIN D3 [Concomitant]
     Active Substance: CHOLECALCIFEROL
  8. CITRACAL-D3 [Concomitant]
     Dosage: SLOW RELEASE
  9. TYLENOL [Concomitant]
     Active Substance: ACETAMINOPHEN
  10. BIOTIN [Concomitant]
     Active Substance: BIOTIN
  11. MAGNESIUM [Concomitant]
     Active Substance: MAGNESIUM
  12. ROSUVASTATIN CALCIUM [Concomitant]
     Active Substance: ROSUVASTATIN CALCIUM
  13. CALCIUM [Concomitant]
     Active Substance: CALCIUM
     Dosage: 500(1250)

REACTIONS (4)
  - Illness [Unknown]
  - Cough [Unknown]
  - Product dose omission issue [Unknown]
  - Eye pain [Unknown]

NARRATIVE: CASE EVENT DATE: 20240408
